FAERS Safety Report 9385004 (Version 1)
Quarter: 2013Q3

REPORT INFORMATION
  Report Type: Spontaneous
  Country: US (occurrence: US)
  Receive Date: 20130705
  Receipt Date: 20130705
  Transmission Date: 20140515
  Serious: No
  Sender: FDA-Public Use
  Company Number: US-GLAXOSMITHKLINE-A1023241A

PATIENT
  Age: 71 Year
  Sex: Female

DRUGS (9)
  1. BENLYSTA [Suspect]
     Indication: SYSTEMIC LUPUS ERYTHEMATOSUS
     Dosage: 720MG MONTHLY
     Route: 042
     Dates: start: 201212, end: 20130331
  2. DIOVAN [Concomitant]
  3. LIPITOR [Concomitant]
  4. PREMARIN [Concomitant]
  5. ZOLPIDEM [Concomitant]
  6. RESTASIS [Concomitant]
  7. CITRACAL [Concomitant]
  8. FISH OIL [Concomitant]
  9. CYMBALTA [Concomitant]

REACTIONS (1)
  - Leukopenia [Not Recovered/Not Resolved]
